FAERS Safety Report 24618759 (Version 1)
Quarter: 2024Q4

REPORT INFORMATION
  Report Type: Spontaneous
  Country: FR (occurrence: FR)
  Receive Date: 20241114
  Receipt Date: 20241114
  Transmission Date: 20250115
  Serious: Yes (Other)
  Sender: HIKMA
  Company Number: None

PATIENT

DRUGS (4)
  1. ATRACURIUM [Suspect]
     Active Substance: ATRACURIUM
     Indication: Antibiotic therapy
     Dosage: 1 DOSAGE FORM, QD
     Route: 023
     Dates: start: 20240708
  2. CISATRACURIUM [Suspect]
     Active Substance: CISATRACURIUM
     Indication: Antibiotic therapy
     Dosage: 1 DOSAGE FORM, QD
     Route: 023
     Dates: start: 20240708
  3. ROCURONIUM BROMIDE [Suspect]
     Active Substance: ROCURONIUM BROMIDE
     Indication: Antibiotic therapy
     Dosage: 1 DOSAGE FORM, QD
     Route: 023
     Dates: start: 20240708
  4. SUCCINYLCHOLINE CHLORIDE [Suspect]
     Active Substance: SUCCINYLCHOLINE CHLORIDE
     Indication: Antibiotic therapy
     Dosage: 1 DOSAGE FORM, QD
     Route: 023
     Dates: start: 20240708

REACTIONS (1)
  - Skin test positive [Recovered/Resolved]

NARRATIVE: CASE EVENT DATE: 20240708
